FAERS Safety Report 5229019-8 (Version None)
Quarter: 2007Q1

REPORT INFORMATION
  Report Type: 
  Country: None (occurrence: None)
  Receive Date: 20070131
  Receipt Date: 20070116
  Transmission Date: 20070707
  Serious: Yes (Other)
  Sender: FDA-Public Use
  Company Number: A-US2007-14026

PATIENT
  Age: 29 Year
  Sex: Female
  Weight: 68 kg

DRUGS (8)
  1. TRACLEER [Suspect]
     Indication: PULMONARY HYPERTENSION
     Dosage: SEE IMAGE
     Route: 048
     Dates: start: 20050601, end: 20050701
  2. TRACLEER [Suspect]
     Indication: PULMONARY HYPERTENSION
     Dosage: SEE IMAGE
     Route: 048
     Dates: start: 20050701, end: 20070101
  3. REMODULIN (TREPROSTINIL) [Concomitant]
  4. WARFARIN SODIUM [Concomitant]
  5. LISINOPRIL [Concomitant]
  6. LORTAB [Concomitant]
  7. AUGMENTIN (CLAVULANATE POTASSIUM, AMOXICILLIN SODIUM) [Concomitant]
  8. DEPO-PROVERA SUSPENSION/INJ [Concomitant]

REACTIONS (5)
  - DRUG EXPOSURE DURING PREGNANCY [None]
  - EAR INFECTION [None]
  - INJECTION SITE INFECTION [None]
  - PREGNANCY [None]
  - TREATMENT NONCOMPLIANCE [None]
